FAERS Safety Report 6973360-5 (Version None)
Quarter: 2010Q3

REPORT INFORMATION
  Report Type: 
  Country: None (occurrence: None)
  Receive Date: 20100909
  Receipt Date: 20100902
  Transmission Date: 20110219
  Serious: Yes (Other)
  Sender: FDA-Public Use
  Company Number: US-JNJFOC-20100901509

PATIENT
  Age: 71 Year
  Sex: Female
  Weight: 45.36 kg

DRUGS (1)
  1. RISPERDAL CONSTA [Suspect]
     Indication: SCHIZOPHRENIA, PARANOID TYPE
     Route: 030

REACTIONS (4)
  - AGGRESSION [None]
  - HOMICIDAL IDEATION [None]
  - PRODUCT QUALITY ISSUE [None]
  - SUICIDAL IDEATION [None]
